FAERS Safety Report 7211262-X (Version None)
Quarter: 2011Q1

REPORT INFORMATION
  Report Type: 
  Country: None (occurrence: None)
  Receive Date: 20110105
  Receipt Date: 20101116
  Transmission Date: 20110831
  Serious: No
  Sender: FDA-Public Use
  Company Number: US-JNJFOC-20101202756

PATIENT

DRUGS (3)
  1. INVEGA [Suspect]
     Route: 048
  2. INVEGA [Suspect]
     Indication: PRODUCT USED FOR UNKNOWN INDICATION
     Route: 048
  3. MIRAPEX [Concomitant]

REACTIONS (13)
  - DYSPNOEA [None]
  - ANXIETY [None]
  - PALPITATIONS [None]
  - TREMOR [None]
  - DECREASED APPETITE [None]
  - ABDOMINAL DISCOMFORT [None]
  - PANIC DISORDER [None]
  - PSYCHIATRIC SYMPTOM [None]
  - DIARRHOEA [None]
  - DREAMY STATE [None]
  - AGORAPHOBIA [None]
  - DEPRESSION [None]
  - DECREASED INTEREST [None]
